FAERS Safety Report 5659961-5 (Version None)
Quarter: 2008Q1

REPORT INFORMATION
  Report Type: 
  Country: None (occurrence: None)
  Receive Date: 20080311
  Receipt Date: 20070819
  Transmission Date: 20080703
  Serious: No
  Sender: FDA-Public Use
  Company Number: US-BAYER-200712686BCC

PATIENT
  Age: 60 Year
  Sex: Female
  Weight: 104 kg

DRUGS (8)
  1. ALEVE [Suspect]
     Indication: DRUG USE FOR UNKNOWN INDICATION
     Dosage: UNIT DOSE: 220 MG
     Route: 048
     Dates: start: 20070819
  2. FLOVENT [Concomitant]
  3. ALBUTEROL [Concomitant]
  4. COZAAR [Concomitant]
  5. LASIX [Concomitant]
  6. INSULIN [Concomitant]
  7. NORVASC [Concomitant]
  8. GLUCOPHAGE [Concomitant]

REACTIONS (1)
  - THROAT IRRITATION [None]
